FAERS Safety Report 12678795 (Version 1)
Quarter: 2016Q3

REPORT INFORMATION
  Report Type: Report from Study
  Country: ES (occurrence: ES)
  Receive Date: 20160824
  Receipt Date: 20160824
  Transmission Date: 20161109
  Serious: Yes (Death, Hospitalization)
  Sender: FDA-Public Use
  Company Number: ES-ROCHE-1815339

PATIENT

DRUGS (14)
  1. MYCOPHENOLATE MOFETIL. [Suspect]
     Active Substance: MYCOPHENOLATE MOFETIL
     Route: 065
  2. MYCOPHENOLATE SODIUM [Suspect]
     Active Substance: MYCOPHENOLATE SODIUM
     Indication: PROPHYLAXIS AGAINST TRANSPLANT REJECTION
     Route: 065
  3. TACROLIMUS. [Suspect]
     Active Substance: TACROLIMUS
     Indication: PROPHYLAXIS AGAINST TRANSPLANT REJECTION
     Route: 065
  4. PREDNISONE. [Suspect]
     Active Substance: PREDNISONE
     Route: 065
  5. MYCOPHENOLATE SODIUM [Suspect]
     Active Substance: MYCOPHENOLATE SODIUM
     Dosage: THREE MONTHS AFTER TRANSPLANTATION, MAINTENANCE DOSE OF 1080-1440 MG/DAY
     Route: 065
  6. MYCOPHENOLATE MOFETIL. [Suspect]
     Active Substance: MYCOPHENOLATE MOFETIL
     Dosage: POST OPERATIVE AFTER 3 MONTHS, MAINTENANCE DOSE OF 1000- 2000 MG/DAY
     Route: 065
  7. ANTITHYMOCYTE IMMUNOGLOBULIN (RABBIT) [Suspect]
     Active Substance: LAPINE T-LYMPHOCYTE IMMUNE GLOBULIN
     Indication: PROPHYLAXIS AGAINST TRANSPLANT REJECTION
     Route: 065
  8. VALGANCICLOVIR. [Concomitant]
     Active Substance: VALGANCICLOVIR
     Indication: ANTIVIRAL PROPHYLAXIS
     Dosage: FOR 3 MONTHS POSTOPERATIVELY
     Route: 065
  9. TACROLIMUS. [Suspect]
     Active Substance: TACROLIMUS
     Dosage: TO ACHIEVE TROUGH LEVEL 5-10 NG/ML
     Route: 065
  10. MYCOPHENOLATE MOFETIL. [Suspect]
     Active Substance: MYCOPHENOLATE MOFETIL
     Indication: PROPHYLAXIS AGAINST TRANSPLANT REJECTION
     Dosage: 2000 MG AS LOADING DOSE
     Route: 065
  11. PREDNISONE. [Suspect]
     Active Substance: PREDNISONE
     Indication: PROPHYLAXIS AGAINST TRANSPLANT REJECTION
     Dosage: DOSE OF 500 MG, 125 MG, AND 0.5 MG/KG ON THE DAY OF SURGERY, POSTOPERATIVE DAY 1, AND POSTOPERATIVE
     Route: 065
  12. RAPAMYCIN [Suspect]
     Active Substance: SIROLIMUS
     Indication: PROPHYLAXIS AGAINST TRANSPLANT REJECTION
     Dosage: ON POSTOPERATIVE DAYS 6, 7, AND 8, A DOSE OF 6 MG/KG DEMONSTRATION FOLLOWED BY 3 MG ON POSTOPERATIVE
     Route: 065
  13. EVEROLIMUS [Suspect]
     Active Substance: EVEROLIMUS
     Indication: PROPHYLAXIS AGAINST TRANSPLANT REJECTION
     Dosage: ON POSTOPERATIVE DAYS 6, 7, AND 8, A DOSE OF 6 MG/KG DEMONSTRATION FOLLOWED BY 3 MG ON POSTOPERATIVE
     Route: 065
  14. SULFAMETHOXAZOLE/TRIMETHOPRIM [Concomitant]
     Active Substance: SULFAMETHOXAZOLE\TRIMETHOPRIM
     Indication: ANTIFUNGAL PROPHYLAXIS
     Dosage: 400/80 MG/DAY WAS ADMINISTERED 6 MONTHS POSTOPERATIVELY.
     Route: 048

REACTIONS (17)
  - Cytomegalovirus infection [Unknown]
  - Anaemia [Unknown]
  - Lymphorrhoea [Unknown]
  - Transplant rejection [Unknown]
  - Infection [Fatal]
  - Oedema [Unknown]
  - Fistula [Unknown]
  - Neoplasm [Fatal]
  - Hernia [Unknown]
  - Impaired healing [Unknown]
  - Diarrhoea [Unknown]
  - Lymphocele [Unknown]
  - Proteinuria [Unknown]
  - Graft loss [Unknown]
  - Leukopenia [Unknown]
  - Pneumonitis [Unknown]
  - Dyslipidaemia [Unknown]
